FAERS Safety Report 8409774-6 (Version None)
Quarter: 2012Q2

REPORT INFORMATION
  Report Type: 
  Country: None (occurrence: None)
  Receive Date: 20120605
  Receipt Date: 20120530
  Transmission Date: 20120825
  Serious: Yes (Hospitalization, Other)
  Sender: FDA-Public Use
  Company Number: US-BAYER-2011-122120

PATIENT
  Age: 37 Year
  Sex: Female
  Weight: 110 kg

DRUGS (4)
  1. YAZ [Suspect]
     Indication: MENORRHAGIA
     Dosage: UNK
     Dates: start: 20070101, end: 20120101
  2. BETAMETHASONE [Concomitant]
     Dosage: 0.1 %, BID, EXTERNAL APPLICATION
  3. YASMIN [Suspect]
     Dosage: UNK
     Dates: start: 20070101, end: 20120101
  4. DICLOFENAC SODIUM [Concomitant]
     Dosage: 75 MG, DAILY
     Route: 048

REACTIONS (8)
  - ANHEDONIA [None]
  - CHOLECYSTITIS CHRONIC [None]
  - EMOTIONAL DISTRESS [None]
  - ANXIETY [None]
  - GALLBLADDER INJURY [None]
  - INJURY [None]
  - GENERAL PHYSICAL HEALTH DETERIORATION [None]
  - PAIN [None]
